FAERS Safety Report 7603965-X (Version None)
Quarter: 2011Q3

REPORT INFORMATION
  Report Type: 
  Country: None (occurrence: None)
  Receive Date: 20110712
  Receipt Date: 20110630
  Transmission Date: 20111222
  Serious: Yes (Death)
  Sender: FDA-Public Use
  Company Number: AU-ROCHE-786664

PATIENT
  Sex: Male

DRUGS (5)
  1. OXALIPLATIN [Concomitant]
  2. AVASTIN [Suspect]
     Route: 065
     Dates: start: 20050622, end: 20051215
  3. FLUOROURACIL [Concomitant]
  4. LEUCOVORIN CALCIUM [Concomitant]
  5. AVASTIN [Suspect]
     Dosage: MONOTHERAPY.
     Route: 065

REACTIONS (1)
  - CHEST INJURY [None]
